FAERS Safety Report 21125489 (Version 1)
Quarter: 2022Q3

REPORT INFORMATION
  Report Type: Spontaneous
  Country: US (occurrence: US)
  Receive Date: 20220725
  Receipt Date: 20220725
  Transmission Date: 20221027
  Serious: No
  Sender: FDA-Public Use
  Company Number: US-MEDEXUS PHARMA, INC.-2022MED00238

PATIENT
  Age: 70 Year
  Sex: Male
  Weight: 73.028 kg

DRUGS (1)
  1. RASUVO [Suspect]
     Active Substance: METHOTREXATE SODIUM
     Indication: Psoriasis
     Dosage: 25 MG INJECTED IN THIGH, 1X/WEEK ON WEDNESDAYS
     Dates: start: 202112

REACTIONS (4)
  - Pain of skin [Recovered/Resolved]
  - Exposure via skin contact [Recovered/Resolved]
  - Device mechanical issue [Recovered/Resolved]
  - Device leakage [Recovered/Resolved]

NARRATIVE: CASE EVENT DATE: 20220518
